FAERS Safety Report 5049469-2 (Version None)
Quarter: 2006Q3

REPORT INFORMATION
  Report Type: 
  Country: None (occurrence: None)
  Receive Date: 20060711
  Receipt Date: 20060711
  Transmission Date: 20061208
  Serious: Yes (Hospitalization)
  Sender: FDA-Public Use
  Company Number: None

PATIENT
  Age: 50 Year
  Sex: Female
  Weight: 84.369 kg

DRUGS (1)
  1. BONIVA [Suspect]
     Dosage: 150MG MONTHLY PO  ONE TIME DOSE
     Route: 048
     Dates: start: 20060614, end: 20060614

REACTIONS (1)
  - DEEP VEIN THROMBOSIS [None]
